FAERS Safety Report 9435954 (Version 3)
Quarter: 2013Q4

REPORT INFORMATION
  Report Type: Spontaneous
  Country: US (occurrence: US)
  Receive Date: 20130801
  Receipt Date: 20131021
  Transmission Date: 20140711
  Serious: Yes (Hospitalization)
  Sender: FDA-Public Use
  Company Number: US-009507513-2009-194897-NL

PATIENT
  Sex: Female
  Weight: 77.11 kg

DRUGS (4)
  1. NUVARING [Suspect]
     Indication: MENOPAUSAL SYMPTOMS
     Dosage: DOSE TEXT: 3 WEEKS IN; 1 WEEK OUT, CONTINUING: NO
     Dates: start: 200607, end: 20070320
  2. EFFEXOR [Concomitant]
     Indication: BIPOLAR DISORDER
     Dosage: 150 MG, QD
     Route: 048
  3. GEODON [Concomitant]
     Indication: BIPOLAR DISORDER
     Dosage: 120 MG, HS
     Route: 048
  4. TRAZODONE HYDROCHLORIDE [Concomitant]
     Indication: BIPOLAR DISORDER
     Dosage: 50 MG, HS
     Route: 048

REACTIONS (13)
  - Deep vein thrombosis [Unknown]
  - Off label use [Unknown]
  - Haemoptysis [Not Recovered/Not Resolved]
  - Pleural effusion [Recovered/Resolved]
  - Pleurisy [Not Recovered/Not Resolved]
  - Pericardial effusion [Unknown]
  - Breast calcifications [Unknown]
  - Chest pain [Unknown]
  - Pulmonary mass [Unknown]
  - Pleural effusion [Recovering/Resolving]
  - Anaemia of chronic disease [Unknown]
  - Hypokalaemia [Unknown]
  - Pleuritic pain [Unknown]
